FAERS Safety Report 6085812-3 (Version None)
Quarter: 2009Q1

REPORT INFORMATION
  Report Type: 
  Country: None (occurrence: None)
  Receive Date: 20090220
  Receipt Date: 20090213
  Transmission Date: 20090719
  Serious: Yes (Congenital Anomaly)
  Sender: FDA-Public Use
  Company Number: A0679404A

PATIENT

DRUGS (2)
  1. PAXIL CR [Suspect]
     Indication: PANIC ATTACK
     Dosage: 25MG UNKNOWN
     Dates: start: 20031022, end: 20060214
  2. PAXIL [Concomitant]
     Indication: PANIC ATTACK
     Dosage: 20MG PER DAY
     Dates: start: 19990101, end: 20070101

REACTIONS (6)
  - ASTHMA [None]
  - CARDIAC DISORDER [None]
  - CARDIAC MURMUR [None]
  - CONGENITAL ANOMALY [None]
  - DRUG EXPOSURE DURING PREGNANCY [None]
  - DYSPNOEA [None]
